FAERS Safety Report 16046385 (Version 1)
Quarter: 2019Q1

REPORT INFORMATION
  Report Type: Other
  Country: JP (occurrence: JP)
  Receive Date: 20190307
  Receipt Date: 20190307
  Transmission Date: 20190418
  Serious: Yes (Hospitalization, Other)
  Sender: FDA-Public Use
  Company Number: JP-EMD SERONO-9075160

PATIENT
  Age: 27 Year
  Sex: Female
  Weight: 45 kg

DRUGS (5)
  1. OVIDREL [Suspect]
     Active Substance: CHORIOGONADOTROPIN ALFA
     Indication: LUTEAL PHASE DEFICIENCY
     Dosage: ADDITIONALLY RECEIVED AT A DOSAGE OF 5000 IU/DAY ON CD 18 AND 20
  2. GONAL-F [Suspect]
     Active Substance: FOLLITROPIN
     Indication: INFERTILITY FEMALE
     Dosage: ON 5 DAY OF MENSTRUAL CYCLE
     Route: 058
  3. GONAL-F [Suspect]
     Active Substance: FOLLITROPIN
     Dosage: RECEIVED A TOTAL DOSE OF 237.5 IU (WITH LOW-DOSE TITRATION METHOD)
     Route: 058
  4. OVIDREL [Suspect]
     Active Substance: CHORIOGONADOTROPIN ALFA
     Indication: OVULATION INDUCTION
     Dosage: DAY 16 CYCLE DAY
  5. NORGESTREL/ETHINYL ESTRADIOL [Suspect]
     Active Substance: ETHINYL ESTRADIOL\NORGESTREL
     Indication: LUTEAL PHASE DEFICIENCY
     Dosage: CYCLE DAY 19
     Route: 048

REACTIONS (3)
  - Imminent abortion [Unknown]
  - Off label use [Unknown]
  - Ovarian hyperstimulation syndrome [Recovering/Resolving]
